FAERS Safety Report 25210150 (Version 1)
Quarter: 2025Q2

REPORT INFORMATION
  Report Type: Spontaneous
  Country: US (occurrence: None)
  Receive Date: 20250417
  Receipt Date: 20250417
  Transmission Date: 20250716
  Serious: No
  Sender: FDA-CTU
  Company Number: None

PATIENT
  Age: 76 Year
  Sex: Female
  Weight: 79.4 kg

DRUGS (1)
  1. DUPIXENT [Suspect]
     Active Substance: DUPILUMAB
     Indication: Asthma
     Dosage: EVERY 14 DAYS SUBCUTANEOUS
     Route: 058
     Dates: start: 20250206

REACTIONS (4)
  - Pain [None]
  - Myalgia [None]
  - Eye pain [None]
  - Vision blurred [None]

NARRATIVE: CASE EVENT DATE: 20250417
